FAERS Safety Report 16311632 (Version 1)
Quarter: 2019Q2

REPORT INFORMATION
  Report Type: Spontaneous
  Country: US (occurrence: US)
  Receive Date: 20190514
  Receipt Date: 20190514
  Transmission Date: 20190711
  Serious: Yes (Hospitalization)
  Sender: FDA-Public Use
  Company Number: US-GILEAD-2019-0407031

PATIENT
  Age: 60 Year
  Sex: Male

DRUGS (1)
  1. HARVONI [Suspect]
     Active Substance: LEDIPASVIR\SOFOSBUVIR
     Indication: CHRONIC HEPATITIS C
     Dosage: 1 DOSAGE FORM, QD
     Route: 048
     Dates: start: 20141105, end: 20150121

REACTIONS (9)
  - Dyspnoea [Unknown]
  - Dilatation atrial [Unknown]
  - Hepatic function abnormal [Unknown]
  - Diastolic dysfunction [Unknown]
  - Hypoglycaemia [Unknown]
  - Renal impairment [Unknown]
  - N-terminal prohormone brain natriuretic peptide increased [Unknown]
  - Oedema peripheral [Unknown]
  - Metabolic acidosis [Unknown]
